FAERS Safety Report 16329686 (Version 1)
Quarter: 2019Q2

REPORT INFORMATION
  Report Type: Spontaneous
  Country: US (occurrence: US)
  Receive Date: 20190520
  Receipt Date: 20190520
  Transmission Date: 20190711
  Serious: No
  Sender: FDA-Public Use
  Company Number: US-BIOGEN-2019BI00738446

PATIENT
  Age: 39 Year
  Sex: Female

DRUGS (1)
  1. TYSABRI [Suspect]
     Active Substance: NATALIZUMAB
     Indication: MULTIPLE SCLEROSIS
     Route: 042
     Dates: start: 201803

REACTIONS (5)
  - Dizziness [Unknown]
  - Pain in extremity [Unknown]
  - Blepharospasm [Unknown]
  - Eye pain [Unknown]
  - Balance disorder [Unknown]

NARRATIVE: CASE EVENT DATE: 20190511
